FAERS Safety Report 9007242 (Version 1)
Quarter: 2013Q1

REPORT INFORMATION
  Report Type: Spontaneous
  Country: GB (occurrence: GB)
  Receive Date: 20130110
  Receipt Date: 20130110
  Transmission Date: 20140127
  Serious: Yes (Hospitalization, Other)
  Sender: FDA-Public Use
  Company Number: GB-ROCHE-1177190

PATIENT
  Age: 14 Year
  Sex: Female
  Weight: 45 kg

DRUGS (6)
  1. CLONAZEPAM [Suspect]
     Indication: AGITATION
     Route: 030
  2. CLONAZEPAM [Suspect]
     Route: 030
  3. CLONAZEPAM [Suspect]
     Route: 030
  4. CLONAZEPAM [Suspect]
     Route: 030
  5. CLONAZEPAM [Suspect]
     Dosage: 0.5 MG ADMINISTERED IN THE MORNING AND AGAIN IN THE EVENING
     Route: 030
  6. LORAZEPAM [Concomitant]
     Indication: AGITATION
     Route: 048

REACTIONS (2)
  - Respiratory depression [Recovered/Resolved]
  - Sedation [Recovered/Resolved]
